FAERS Safety Report 4811079-7 (Version None)
Quarter: 2005Q4

REPORT INFORMATION
  Report Type: 
  Country: None (occurrence: None)
  Receive Date: 20051027
  Receipt Date: 20010926
  Transmission Date: 20060501
  Serious: Yes (Life-Threatening, Hospitalization, Disabling, Other)
  Sender: FDA-Public Use
  Company Number: 2001SUS0868

PATIENT
  Age: 28 Year
  Sex: Female

DRUGS (7)
  1. STOCRIN [Suspect]
     Indication: HIV INFECTION
     Route: 048
     Dates: start: 20000530, end: 20000601
  2. ZERIT [Suspect]
     Indication: HIV INFECTION
     Route: 048
     Dates: start: 19981114, end: 20000601
  3. CRIXIVAN [Suspect]
     Indication: HIV INFECTION
     Dosage: THERAPY STOPPED 29-MAY-2000, 800 MG RESTARTED 08/01/00 UNTIL 25-APR-2001
     Route: 048
     Dates: start: 19990710, end: 20010425
  4. NORVIR [Suspect]
     Indication: HIV INFECTION
     Route: 048
     Dates: start: 20000801, end: 20010425
  5. LAMIVUDINE [Concomitant]
     Dosage: LAMIVUDINE WAS REINITIATED ON 08/01/00 AND WAS ONGOING.
     Route: 048
     Dates: start: 19991101, end: 20000601
  6. SULFAMETHOXAZOLE + TRIMETHOPRIM [Concomitant]
     Dosage: SULFAMETHOXAZOLE+TRIMETHOPRIM WAS REINITIATED ON 09/01/00 AND WAS ONGOING
     Route: 048
     Dates: start: 19991101, end: 20000601
  7. ZIDOVUDINE [Concomitant]
     Route: 048
     Dates: start: 20000801

REACTIONS (7)
  - AIDS ENCEPHALOPATHY [None]
  - ANAEMIA [None]
  - DISSEMINATED INTRAVASCULAR COAGULATION [None]
  - HYPERLIPIDAEMIA [None]
  - ILEUS [None]
  - PANCREATITIS ACUTE [None]
  - THROMBOCYTOPENIA [None]
